FAERS Safety Report 25493941 (Version 1)
Quarter: 2025Q2

REPORT INFORMATION
  Report Type: Spontaneous
  Country: GB (occurrence: GB)
  Receive Date: 20250630
  Receipt Date: 20250630
  Transmission Date: 20250717
  Serious: Yes (Hospitalization, Other)
  Sender: RANBAXY
  Company Number: GB-SUN PHARMACEUTICAL INDUSTRIES LTD-2025RR-508893

PATIENT
  Age: 77 Year
  Sex: Female

DRUGS (2)
  1. RIVAROXABAN [Suspect]
     Active Substance: RIVAROXABAN
     Indication: Atrial fibrillation
     Route: 065
  2. RIVAROXABAN [Suspect]
     Active Substance: RIVAROXABAN
     Indication: Atrial fibrillation
     Dosage: 20 MILLIGRAM, DAILY
     Route: 065

REACTIONS (5)
  - Haemorrhage intracranial [Recovering/Resolving]
  - Arteriovenous malformation [Unknown]
  - Hypertension [Unknown]
  - Subarachnoid haemorrhage [Unknown]
  - Aneurysm [Unknown]

NARRATIVE: CASE EVENT DATE: 20250511
